FAERS Safety Report 9130323 (Version 1)
Quarter: 2013Q1

REPORT INFORMATION
  Report Type: Spontaneous
  Country: US (occurrence: US)
  Receive Date: 20130228
  Receipt Date: 20130228
  Transmission Date: 20140127
  Serious: No
  Sender: FDA-Public Use
  Company Number: US-ASTRAZENECA-2013SE05577

PATIENT
  Age: 73 Year
  Sex: Male
  Weight: 90.7 kg

DRUGS (7)
  1. ATACAND [Suspect]
     Indication: HYPERTENSION
     Route: 048
     Dates: end: 2012
  2. ATACAND [Suspect]
     Indication: HYPERTENSION
     Route: 048
  3. MICARDIS [Suspect]
     Route: 048
  4. LOSARTAN [Suspect]
     Route: 065
  5. LIPITOR [Concomitant]
     Indication: BLOOD CHOLESTEROL INCREASED
  6. METFORMIN [Concomitant]
     Indication: DIABETES MELLITUS
  7. GLIMEPERIDE [Concomitant]
     Indication: DIABETES MELLITUS

REACTIONS (5)
  - Heart rate increased [Unknown]
  - Type 2 diabetes mellitus [Unknown]
  - Gastric disorder [Unknown]
  - Abdominal pain upper [Unknown]
  - Epigastric discomfort [Unknown]
